FAERS Safety Report 6447559-0 (Version None)
Quarter: 2009Q4

REPORT INFORMATION
  Report Type: 
  Country: None (occurrence: None)
  Receive Date: 20091119
  Receipt Date: 20090507
  Transmission Date: 20100525
  Serious: Yes (Other)
  Sender: FDA-Public Use
  Company Number: US-AMGEN-COG346236

PATIENT
  Sex: Female

DRUGS (3)
  1. ENBREL [Suspect]
     Indication: RHEUMATOID ARTHRITIS
     Route: 058
     Dates: start: 20080501
  2. IMURAN [Concomitant]
     Dates: start: 20070101
  3. PLAQUENIL [Concomitant]
     Dates: start: 20030101

REACTIONS (4)
  - ANXIETY [None]
  - DEPRESSION [None]
  - INJECTION SITE IRRITATION [None]
  - MOOD ALTERED [None]
